FAERS Safety Report 16816349 (Version 1)
Quarter: 2019Q3

REPORT INFORMATION
  Report Type: Spontaneous
  Country: BR (occurrence: BR)
  Receive Date: 20190917
  Receipt Date: 20190917
  Transmission Date: 20191005
  Serious: Yes (Other)
  Sender: FDA-Public Use
  Company Number: BR-GLAXOSMITHKLINE-BR2018GSK067759

PATIENT
  Sex: Female
  Weight: 91.5 kg

DRUGS (1)
  1. BENLYSTA [Suspect]
     Active Substance: BELIMUMAB
     Indication: SYSTEMIC LUPUS ERYTHEMATOSUS
     Dosage: UNK
     Dates: start: 20160204

REACTIONS (3)
  - Inappropriate schedule of product administration [Recovered/Resolved]
  - Product dose omission [Not Recovered/Not Resolved]
  - Systemic lupus erythematosus [Recovering/Resolving]
